FAERS Safety Report 8492330-1 (Version None)
Quarter: 2012Q3

REPORT INFORMATION
  Report Type: 
  Country: None (occurrence: None)
  Receive Date: 20120706
  Receipt Date: 20120702
  Transmission Date: 20120928
  Serious: No
  Sender: FDA-Public Use
  Company Number: US-PFIZER INC-2012158691

PATIENT
  Sex: Male

DRUGS (4)
  1. EFFEXOR XR [Suspect]
     Dosage: 150 MG, 1X/DAY
  2. EFFEXOR XR [Suspect]
     Dosage: UNK
  3. VENLAFAXINE HCL [Suspect]
     Dosage: UNK
  4. VENLAFAXINE HCL [Suspect]
     Dosage: 112.5MG IN MORNING AND 112.5MG IN EVENING AND 75MG AT NIGHT

REACTIONS (2)
  - AGITATION [None]
  - INCORRECT DOSE ADMINISTERED [None]
